FAERS Safety Report 24833438 (Version 1)
Quarter: 2025Q1

REPORT INFORMATION
  Report Type: Spontaneous
  Country: US (occurrence: US)
  Receive Date: 20250113
  Receipt Date: 20250113
  Transmission Date: 20250408
  Serious: Yes (Death, Hospitalization)
  Sender: APOTEX
  Company Number: US-APOTEX-2025AP000677

PATIENT
  Age: 3 Year
  Sex: Male

DRUGS (3)
  1. DOXYCYCLINE [Suspect]
     Active Substance: DOXYCYCLINE
     Indication: Product used for unknown indication
     Route: 051
  2. LIDOCAINE [Suspect]
     Active Substance: LIDOCAINE
     Indication: Product used for unknown indication
     Route: 051
  3. IOPAMIDOL [Suspect]
     Active Substance: IOPAMIDOL
     Indication: Product used for unknown indication
     Route: 051

REACTIONS (1)
  - Medication error [Fatal]
